FAERS Safety Report 14344078 (Version 1)
Quarter: 2017Q4

REPORT INFORMATION
  Report Type: Spontaneous
  Country: US (occurrence: US)
  Receive Date: 20171229
  Receipt Date: 20171229
  Transmission Date: 20180321
  Serious: No
  Sender: FDA-Public Use
  Company Number: None

PATIENT
  Age: 46 Year
  Sex: Female

DRUGS (1)
  1. CAPECITABINE 500MG UNKNOWN [Suspect]
     Active Substance: CAPECITABINE
     Indication: BREAST CANCER
     Route: 048
     Dates: start: 20171111

REACTIONS (3)
  - Neuropathy peripheral [None]
  - Skin discolouration [None]
  - Back pain [None]

NARRATIVE: CASE EVENT DATE: 20171118
